FAERS Safety Report 6989978 (Version 1)
Quarter: 2020Q3

REPORT INFORMATION
  Report Type: Report from Study
  Country: CA (occurrence: CA)
  Receive Date: 20090508
  Receipt Date: 20090508
  Transmission Date: 20201104
  Serious: Yes (Death)
  Sender: FDA-Public Use
  Company Number: CA-JNJFOC-20090407114

PATIENT
  Age: 71 Year
  Sex: Female

DRUGS (2)
  1. INFLIXIMAB [Suspect]
     Active Substance: INFLIXIMAB
     Route: 042
  2. INFLIXIMAB [Suspect]
     Active Substance: INFLIXIMAB
     Indication: PSORIASIS
     Route: 042

REACTIONS (3)
  - Gastrointestinal cancer metastatic [Fatal]
  - Pneumonia [Unknown]
  - Intestinal perforation [Fatal]

NARRATIVE: CASE EVENT DATE: 20081101
